FAERS Safety Report 8052062-0 (Version None)
Quarter: 2012Q1

REPORT INFORMATION
  Report Type: 
  Country: None (occurrence: None)
  Receive Date: 20120118
  Receipt Date: 20120106
  Transmission Date: 20120608
  Serious: Yes (Hospitalization)
  Sender: FDA-Public Use
  Company Number: US-ELI_LILLY_AND_COMPANY-US201110004665

PATIENT
  Sex: Female

DRUGS (45)
  1. OXYBUTYNIN [Concomitant]
  2. DITROPAN [Concomitant]
  3. NEXIUM [Concomitant]
  4. METHOTREXATE [Concomitant]
     Dosage: 5 MG, 2/W
  5. FLEXERIL [Concomitant]
     Dosage: 5 MG, BID
  6. CLARITIN [Concomitant]
  7. PRILOSEC [Concomitant]
  8. OS-CAL 500 + D [Concomitant]
  9. DUONEB [Concomitant]
     Indication: DYSPNOEA
  10. SOMA [Concomitant]
  11. MULTI-VITAMIN [Concomitant]
  12. ATROVENT [Concomitant]
  13. ANALGESICS [Concomitant]
     Indication: PAIN
     Dosage: UNK, UNKNOWN
  14. LOSARTAN POTASSIUM [Concomitant]
     Indication: BLOOD PRESSURE
  15. METOPROLOL SUCCINATE [Concomitant]
  16. FORTEO [Suspect]
     Indication: OSTEOPOROSIS
     Dosage: 20 UG, QD
     Dates: start: 20110101, end: 20110926
  17. LYRICA [Concomitant]
     Dosage: 100 MG, TID
  18. LEVOTHYROXINE SODIUM [Concomitant]
  19. ADVAIR DISKUS 100/50 [Concomitant]
  20. FENTANYL [Concomitant]
     Dosage: 25 MG, UNK
  21. ANALGESICS [Concomitant]
     Dosage: UNK, QD
  22. MULTIPLE VITAMIN [Concomitant]
  23. FORTEO [Suspect]
     Dosage: 20 UG, QD
  24. FORTEO [Suspect]
     Dosage: 20 UG, QD
  25. VITAMIN D [Concomitant]
  26. PREDNISONE [Concomitant]
     Dosage: 5 MG, BID
  27. MUCINEX [Concomitant]
  28. NORVASC [Concomitant]
  29. HYDROCODONE BITARTRATE [Concomitant]
  30. REQUIP [Concomitant]
     Indication: RESTLESS LEGS SYNDROME
  31. NIFEREX-150 FORTE [Concomitant]
  32. VITAMIN D [Concomitant]
  33. ISOPTO HOMATROPINE [Concomitant]
  34. FORTEO [Suspect]
     Dosage: 20 UG, QD
     Dates: start: 20111017, end: 20111104
  35. FORTEO [Suspect]
     Dosage: 20 UG, QD
  36. TOPROL-XL [Concomitant]
  37. ASPIRIN [Concomitant]
     Dosage: 81 MG, QD
  38. CALCIUM [Concomitant]
  39. SYNTHROID [Concomitant]
  40. WELCHOL [Concomitant]
  41. NORCO [Concomitant]
  42. CYMBALTA [Concomitant]
     Dosage: 60 MG, BID
  43. VALTREX [Concomitant]
  44. ACETAMINOPHEN [Concomitant]
  45. BENZONATATE [Concomitant]

REACTIONS (19)
  - AGGRESSION [None]
  - DRY MOUTH [None]
  - HOSPITALISATION [None]
  - HYPOPHAGIA [None]
  - DIARRHOEA [None]
  - MALAISE [None]
  - MENTAL STATUS CHANGES [None]
  - BACK PAIN [None]
  - CHEST PAIN [None]
  - DEHYDRATION [None]
  - HYPERTENSION [None]
  - UNRESPONSIVE TO STIMULI [None]
  - OEDEMA PERIPHERAL [None]
  - CONSTIPATION [None]
  - ASTHENIA [None]
  - HAEMORRHAGE [None]
  - COUGH [None]
  - DYSPNOEA [None]
  - HIATUS HERNIA [None]
